FAERS Safety Report 4489801-1 (Version None)
Quarter: 2004Q4

REPORT INFORMATION
  Report Type: 
  Country: None (occurrence: None)
  Receive Date: 20041026
  Receipt Date: 20041009
  Transmission Date: 20050328
  Serious: Yes (Hospitalization)
  Sender: FDA-Public Use
  Company Number: DSA_25166_2004

PATIENT
  Age: 59 Year
  Sex: Female

DRUGS (4)
  1. TEVETEN [Suspect]
     Indication: ILL-DEFINED DISORDER
     Dosage: 600 MG Q DAY PO
     Route: 048
     Dates: start: 20031101, end: 20040401
  2. DYAZIDE [Concomitant]
  3. SOTALOL HCL [Concomitant]
  4. VAROTEC [Concomitant]

REACTIONS (5)
  - ARRHYTHMIA [None]
  - BLOOD PRESSURE FLUCTUATION [None]
  - CARDIOMEGALY [None]
  - DIZZINESS [None]
  - HYPERHIDROSIS [None]
